FAERS Safety Report 4608408-6 (Version None)
Quarter: 2005Q1

REPORT INFORMATION
  Report Type: 
  Country: None (occurrence: None)
  Receive Date: 20050311
  Receipt Date: 20050311
  Transmission Date: 20050727
  Serious: No
  Sender: FDA-Public Use
  Company Number: None

PATIENT
  Age: 37 Year
  Sex: Female
  Weight: 50 kg

DRUGS (2)
  1. TEQUIN [Suspect]
     Indication: BRONCHITIS ACUTE
     Dosage: 400 MG IV DAILY
     Route: 042
  2. SOLU-MEDROL [Suspect]
     Indication: ASTHMA
     Dosage: 30 MG IV Q 6 HRS
     Route: 042

REACTIONS (1)
  - HYPERGLYCAEMIA [None]
